FAERS Safety Report 6264020-7 (Version None)
Quarter: 2009Q3

REPORT INFORMATION
  Report Type: 
  Country: None (occurrence: None)
  Receive Date: 20090710
  Receipt Date: 20090706
  Transmission Date: 20100115
  Serious: Yes (Hospitalization, Other)
  Sender: FDA-Public Use
  Company Number: US-ASTRAZENECA-2008UW27495

PATIENT
  Age: 14873 Day
  Sex: Male
  Weight: 100.7 kg

DRUGS (12)
  1. SEROQUEL [Suspect]
     Indication: PSYCHOTIC DISORDER
     Dosage: 10 MG TO 200 MG
     Route: 048
     Dates: start: 20030520, end: 20070201
  2. SEROQUEL [Suspect]
     Indication: HALLUCINATION
     Dosage: 10 MG TO 200 MG
     Route: 048
     Dates: start: 20030520, end: 20070201
  3. ABILIFY [Concomitant]
     Dosage: 15 MG TO 20 MG
     Dates: start: 20060520
  4. HALDOL [Concomitant]
  5. RISPERDAL [Concomitant]
     Dosage: 1 MG TO 3 MG
     Dates: start: 20040409
  6. STELAZINE [Concomitant]
     Dates: start: 19930101, end: 20000101
  7. BUPROPION [Concomitant]
     Dosage: 150 MG TO 300 MG
     Dates: start: 20070426
  8. BUSPIRONE HCL [Concomitant]
     Dates: start: 20050310, end: 20050410
  9. WELLBUTRIN XL [Concomitant]
     Dates: start: 20060512, end: 20071006
  10. MIRTAZAPINE [Concomitant]
     Dates: start: 20040409, end: 20070606
  11. ATIVAN [Concomitant]
     Dates: start: 20070201
  12. ZYPREXA [Concomitant]

REACTIONS (8)
  - ADVERSE DRUG REACTION [None]
  - ASTHMA [None]
  - BRONCHITIS CHRONIC [None]
  - CARDIAC DISORDER [None]
  - CHRONIC OBSTRUCTIVE PULMONARY DISEASE [None]
  - DIABETES MELLITUS [None]
  - GALLBLADDER DISORDER [None]
  - HYPERTENSION [None]
